FAERS Safety Report 6957427-3 (Version None)
Quarter: 2010Q3

REPORT INFORMATION
  Report Type: 
  Country: None (occurrence: None)
  Receive Date: 20100817
  Receipt Date: 20090908
  Transmission Date: 20110219
  Serious: No
  Sender: FDA-Public Use
  Company Number: 20097108

PATIENT
  Sex: Male

DRUGS (2)
  1. LIORESAL [Suspect]
     Indication: MUSCLE SPASTICITY
     Dosage: 300-250 MCG, DAILY, INTRATHECAL
     Route: 037
  2. ORAL BACLOFEN [Concomitant]

REACTIONS (6)
  - DRUG INEFFECTIVE [None]
  - HYPERTONIA [None]
  - MUSCLE RIGIDITY [None]
  - MUSCLE SPASTICITY [None]
  - PRURITUS [None]
  - SOMNOLENCE [None]
